FAERS Safety Report 18577326 (Version 1)
Quarter: 2020Q4

REPORT INFORMATION
  Report Type: Spontaneous
  Country: GB (occurrence: GB)
  Receive Date: 20201203
  Receipt Date: 20201203
  Transmission Date: 20210114
  Serious: Yes (Hospitalization)
  Sender: FDA-Public Use
  Company Number: GB-JNJFOC-20201201920

PATIENT
  Age: 56 Year
  Sex: Female
  Weight: 86.4 kg

DRUGS (2)
  1. CANAGLIFLOZIN [Suspect]
     Active Substance: CANAGLIFLOZIN
     Indication: TYPE 2 DIABETES MELLITUS
     Dosage: IN THE MORNING
     Route: 048
     Dates: start: 20181105, end: 20201021
  2. METFORMIN [Concomitant]
     Active Substance: METFORMIN HYDROCHLORIDE
     Indication: TYPE 2 DIABETES MELLITUS

REACTIONS (2)
  - Skin ulcer [Unknown]
  - Diabetic foot infection [Recovering/Resolving]

NARRATIVE: CASE EVENT DATE: 20200810
